FAERS Safety Report 8238850-6 (Version None)
Quarter: 2012Q1

REPORT INFORMATION
  Report Type: 
  Country: None (occurrence: None)
  Receive Date: 20120327
  Receipt Date: 20120315
  Transmission Date: 20120608
  Serious: Yes (Other)
  Sender: FDA-Public Use
  Company Number: PHHY2011GB105154

PATIENT
  Age: 30 Year
  Sex: Female
  Weight: 95.8 kg

DRUGS (8)
  1. VENLAFAXINE [Suspect]
     Dates: start: 20111004
  2. ZOPICLONE [Concomitant]
     Dates: start: 20110909, end: 20111007
  3. AGOMELATINE [Suspect]
     Dosage: 25 MG, UNK
     Route: 048
     Dates: start: 20111028, end: 20111101
  4. VENLAFAXINE [Suspect]
     Dates: start: 20110901, end: 20111001
  5. MIRENA [Concomitant]
     Dates: start: 20101210
  6. AGOMELATINE [Suspect]
     Dosage: 25 MG, UNK
     Route: 048
     Dates: start: 20110928, end: 20111026
  7. AGOMELATINE [Suspect]
     Dosage: 25 MG, UNK
     Route: 048
     Dates: start: 20111118
  8. FLUCLOXACILLIN [Concomitant]
     Dates: start: 20110927, end: 20111004

REACTIONS (2)
  - ABDOMINAL DISTENSION [None]
  - ABDOMINAL PAIN [None]
